FAERS Safety Report 23982518 (Version 1)
Quarter: 2024Q2

REPORT INFORMATION
  Report Type: Spontaneous
  Country: CN (occurrence: CN)
  Receive Date: 20240617
  Receipt Date: 20240617
  Transmission Date: 20240716
  Serious: Yes (Life-Threatening, Other)
  Sender: FDA-Public Use
  Company Number: CN-BAYER-2024A087096

PATIENT
  Age: 38 Year
  Sex: Female
  Weight: 48 kg

DRUGS (1)
  1. AVELOX [Suspect]
     Active Substance: MOXIFLOXACIN HYDROCHLORIDE
     Indication: Pyrexia
     Dosage: 0.4 G, QD
     Route: 041
     Dates: start: 20240317, end: 20240317

REACTIONS (6)
  - Blood pressure decreased [None]
  - Respiratory rate increased [None]
  - Listless [Recovering/Resolving]
  - Seizure [Recovered/Resolved]
  - Dizziness [Recovered/Resolved]
  - Off label use [None]

NARRATIVE: CASE EVENT DATE: 20240317
